FAERS Safety Report 4601138-6 (Version None)
Quarter: 2005Q1

REPORT INFORMATION
  Report Type: 
  Country: None (occurrence: None)
  Receive Date: 20050204
  Receipt Date: 20040823
  Transmission Date: 20050727
  Serious: Yes (Other)
  Sender: FDA-Public Use
  Company Number: US-2004-025775

PATIENT
  Age: 45 Year
  Sex: Female

DRUGS (3)
  1. MIRENA [Suspect]
     Indication: CONTRACEPTION
     Dosage: 20 UG, CONT, INTRA-UTERINE
     Route: 015
     Dates: start: 20040426, end: 20040504
  2. PHENOBARBITAL TAB [Concomitant]
  3. PAXIL [Concomitant]

REACTIONS (1)
  - UTERINE PERFORATION [None]
